FAERS Safety Report 13551681 (Version 4)
Quarter: 2018Q4

REPORT INFORMATION
  Report Type: Report from Study
  Country: US (occurrence: US)
  Receive Date: 20170516
  Receipt Date: 20181009
  Transmission Date: 20190204
  Serious: Yes (Hospitalization, Other)
  Sender: FDA-Public Use
  Company Number: US-ACTELION-A-US2017-153846

PATIENT
  Age: 78 Year
  Sex: Female
  Weight: 58.96 kg

DRUGS (4)
  1. NIFEDIPINE. [Concomitant]
     Active Substance: NIFEDIPINE
  2. OXYCODONE [Concomitant]
     Active Substance: OXYCODONE
  3. TRACLEER [Suspect]
     Active Substance: BOSENTAN
     Indication: PULMONARY HYPERTENSION
     Dosage: 125 MG, BID
     Route: 048
  4. SILDENAFIL. [Concomitant]
     Active Substance: SILDENAFIL

REACTIONS (7)
  - Syncope [Unknown]
  - Dyspnoea [Unknown]
  - Localised infection [Unknown]
  - Intervertebral disc operation [Unknown]
  - Fatigue [Unknown]
  - Thrombosis [Unknown]
  - Dizziness [Unknown]

NARRATIVE: CASE EVENT DATE: 201708
